FAERS Safety Report 14299435 (Version 2)
Quarter: 2018Q1

REPORT INFORMATION
  Report Type: Report from Study
  Country: None (occurrence: IE)
  Receive Date: 20171219
  Receipt Date: 20180102
  Transmission Date: 20180509
  Serious: Yes (Hospitalization)
  Sender: FDA-Public Use
  Company Number: IE-ABBVIE-17K-229-2197174-00

PATIENT
  Age: 40 Year
  Sex: Female

DRUGS (2)
  1. HUMIRA [Suspect]
     Active Substance: ADALIMUMAB
     Route: 058
     Dates: start: 2017, end: 2017
  2. HUMIRA [Suspect]
     Active Substance: ADALIMUMAB
     Indication: CROHN^S DISEASE
     Route: 058
     Dates: start: 20171026, end: 2017

REACTIONS (4)
  - Scar [Unknown]
  - Intestinal obstruction [Recovered/Resolved]
  - Skin infection [Unknown]
  - Gastrointestinal wall thickening [Recovered/Resolved]

NARRATIVE: CASE EVENT DATE: 2017
